FAERS Safety Report 4635374-X (Version None)
Quarter: 2005Q2

REPORT INFORMATION
  Report Type: 
  Country: None (occurrence: None)
  Receive Date: 20050411
  Receipt Date: 20050330
  Transmission Date: 20051028
  Serious: Yes (Other)
  Sender: FDA-Public Use
  Company Number: 2005052217

PATIENT
  Sex: Female
  Weight: 78.0187 kg

DRUGS (14)
  1. ROGAINE [Suspect]
     Indication: ALOPECIA
     Dosage: 1.5 ML BID, TOPICAL
     Route: 061
     Dates: start: 20040410
  2. VALSARTAN [Concomitant]
  3. ZAFIRLUKAST (ZAFIRLUKAST) [Concomitant]
  4. POTASSIUM CHLORIDE [Concomitant]
  5. GABAPENTIN [Concomitant]
  6. TRAZODONE HCL [Concomitant]
  7. BECLOMETASONE DIPROPIONATE (BECLOMETASONE DIPROPRIONATE) [Concomitant]
  8. PANTOPRAZOLE (PANTOPRAZOLE) [Concomitant]
  9. GLUCOSAMINE (GLUCOSAMINE) [Concomitant]
  10. CHONDROITIN SULFATE (CHONDROITIN SULFATE) [Concomitant]
  11. MULTIPLE VITAMINS (ASCORBIC ACID, ERGOCALCIFEROL, FOLIC ACID, RETINOL, [Concomitant]
  12. PYRIDOXINE HCL [Concomitant]
  13. CYANOCOBALAMIN [Concomitant]
  14. CALCIUM (CALCIUM) [Concomitant]

REACTIONS (3)
  - CARPAL TUNNEL SYNDROME [None]
  - JOINT LOCK [None]
  - MUSCLE ATROPHY [None]
